FAERS Safety Report 7755507-6 (Version None)
Quarter: 2011Q3

REPORT INFORMATION
  Report Type: 
  Country: None (occurrence: None)
  Receive Date: 20110916
  Receipt Date: 20110912
  Transmission Date: 20111222
  Serious: Yes (Other)
  Sender: FDA-Public Use
  Company Number: US-PFIZER INC-2011145044

PATIENT
  Sex: Female
  Weight: 80 kg

DRUGS (6)
  1. GEODON [Suspect]
     Indication: BIPOLAR I DISORDER
     Dosage: LOW DOSE
     Route: 048
     Dates: start: 20090101, end: 20090101
  2. TEGRETOL [Suspect]
     Indication: CONVULSION
  3. NEURONTIN [Suspect]
  4. ABILIFY [Suspect]
     Dosage: UNK
  5. WELLBUTRIN [Suspect]
     Dosage: UNK
     Route: 048
     Dates: start: 19920101
  6. WELLBUTRIN [Suspect]
     Dosage: UNK
     Route: 048
     Dates: start: 19870101

REACTIONS (8)
  - HEAD INJURY [None]
  - SOMNOLENCE [None]
  - ROAD TRAFFIC ACCIDENT [None]
  - STRESS [None]
  - DRUG INEFFECTIVE [None]
  - CONVULSION [None]
  - GRAND MAL CONVULSION [None]
  - DRUG HYPERSENSITIVITY [None]
